FAERS Safety Report 9136864 (Version 3)
Quarter: 2013Q2

REPORT INFORMATION
  Report Type: Spontaneous
  Country: US (occurrence: US)
  Receive Date: 20130304
  Receipt Date: 20130422
  Transmission Date: 20140414
  Serious: No
  Sender: FDA-Public Use
  Company Number: US-PFIZER INC-2013071695

PATIENT
  Sex: Male

DRUGS (2)
  1. INLYTA [Suspect]
     Indication: RENAL CELL CARCINOMA STAGE IV
     Dosage: 5 MG, 2X/DAY
     Route: 048
  2. DILAUDID [Concomitant]
     Dosage: UNK

REACTIONS (1)
  - Confusional state [Unknown]
